FAERS Safety Report 22883862 (Version 2)
Quarter: 2024Q2

REPORT INFORMATION
  Report Type: Spontaneous
  Country: CA (occurrence: CA)
  Receive Date: 20230830
  Receipt Date: 20240606
  Transmission Date: 20240716
  Serious: Yes (Hospitalization, Other)
  Sender: FDA-Public Use
  Company Number: CA-Accord-374706

PATIENT
  Age: 45 Year
  Sex: Male

DRUGS (3)
  1. FLUOROURACIL [Suspect]
     Active Substance: FLUOROURACIL
     Indication: Colon cancer stage IV
     Dosage: 3 CYCLICAL
  2. OXALIPLATIN [Concomitant]
     Active Substance: OXALIPLATIN
     Indication: Colon cancer stage IV
  3. LEUCOVORIN CALCIUM [Concomitant]
     Active Substance: LEUCOVORIN CALCIUM
     Indication: Colon cancer stage IV

REACTIONS (5)
  - Myocardial injury [Recovered/Resolved]
  - Atrial fibrillation [Recovering/Resolving]
  - Arteriospasm coronary [Recovering/Resolving]
  - Ventricular hypokinesia [Recovered/Resolved]
  - Left ventricular dysfunction [Recovered/Resolved]
